FAERS Safety Report 4555440-7 (Version None)
Quarter: 2005Q1

REPORT INFORMATION
  Report Type: 
  Country: None (occurrence: None)
  Receive Date: 20050119
  Receipt Date: 20050112
  Transmission Date: 20050727
  Serious: Yes (Other)
  Sender: FDA-Public Use
  Company Number: PHNU2005DE00534

PATIENT
  Sex: Female

DRUGS (2)
  1. ANALGESICS [Concomitant]
  2. CALCITONIN SALMON [Suspect]
     Indication: POST-TRAUMATIC OSTEOPOROSIS
     Dosage: 1 DF, QD

REACTIONS (1)
  - TUMOUR MARKER INCREASED [None]
